FAERS Safety Report 12165786 (Version 1)
Quarter: 2016Q1

REPORT INFORMATION
  Report Type: Spontaneous
  Country: DE (occurrence: DE)
  Receive Date: 20160309
  Receipt Date: 20160309
  Transmission Date: 20160526
  Serious: Yes (Other)
  Sender: FDA-Public Use
  Company Number: GXKR2016DE001244

PATIENT
  Age: 13 Year

DRUGS (4)
  1. AMBROXOL [Concomitant]
     Active Substance: AMBROXOL
  2. OTRIVEN [Concomitant]
     Active Substance: XYLOMETAZOLINE HYDROCHLORIDE
  3. FLUOXETINE [Suspect]
     Active Substance: FLUOXETINE HYDROCHLORIDE
     Indication: PRODUCT USED FOR UNKNOWN INDICATION
     Route: 048
  4. TAVOR (LORAZEPAM) [Concomitant]
     Active Substance: LORAZEPAM

REACTIONS (1)
  - Leukopenia [Unknown]
